FAERS Safety Report 5170452-0 (Version None)
Quarter: 2006Q4

REPORT INFORMATION
  Report Type: 
  Country: None (occurrence: None)
  Receive Date: 20061212
  Receipt Date: 20061206
  Transmission Date: 20070319
  Serious: Yes (Other)
  Sender: FDA-Public Use
  Company Number: US-ROXANE LABORATORIES, INC-2006-BP-14173RO

PATIENT
  Age: 55 Year
  Sex: Female

DRUGS (7)
  1. CYCLOPHOSPHAMIDE [Suspect]
     Indication: CHEMOTHERAPY
     Dosage: 100 MG/M2 DAYS 1 TO 7 Q14D X 8 CYCLES
     Route: 048
  2. DOXORUBICIN HCL [Suspect]
     Indication: CHEMOTHERAPY
     Dosage: 40 MG/M2 DAY 1 Q14D X 8 CYCLES
     Route: 042
  3. METHOTREXATE [Suspect]
     Indication: CHEMOTHERAPY
     Dosage: 100 MG/M2 DAY 1 Q14D X 8 CYCLES
     Route: 042
  4. LEUCOVORIN CALCIUM [Suspect]
     Indication: CHEMOTHERAPY
     Dosage: 10 MG/M2 Q6H X 6 DOSES STARTING DAY 2 Q14D X 8 CYCLES
     Route: 048
  5. VINCRISTINE [Suspect]
     Indication: CHEMOTHERAPY
     Dosage: 1 MG DAY 1 Q14D X 8 CYCLES
     Route: 042
  6. FLUOROURACIL [Suspect]
     Indication: CHEMOTHERAPY
     Dosage: 600 MG/M2 DAY 2 Q14D X 8 CYCLES
     Route: 042
  7. FLUOROURACIL [Suspect]
     Dosage: 300 MG/M2 DAYS 8 AND 9 Q14D X 8 CYCLES
     Route: 042

REACTIONS (2)
  - LIP AND/OR ORAL CAVITY CANCER [None]
  - MUCOSAL INFLAMMATION [None]
